FAERS Safety Report 5194468-3 (Version None)
Quarter: 2006Q4

REPORT INFORMATION
  Report Type: 
  Country: None (occurrence: None)
  Receive Date: 20061221
  Receipt Date: 20061208
  Transmission Date: 20070319
  Serious: Yes (Death)
  Sender: FDA-Public Use
  Company Number: PHO-2006-049

PATIENT
  Age: 69 Year
  Sex: Male

DRUGS (1)
  1. PHOTOFRIN [Suspect]
     Dates: start: 20061020

REACTIONS (2)
  - LOWER RESPIRATORY TRACT INFECTION [None]
  - MULTI-ORGAN FAILURE [None]
